FAERS Safety Report 7203742-8 (Version None)
Quarter: 2010Q4

REPORT INFORMATION
  Report Type: 
  Country: None (occurrence: None)
  Receive Date: 20101217
  Receipt Date: 20101026
  Transmission Date: 20110411
  Serious: Yes (Hospitalization, Other)
  Sender: FDA-Public Use
  Company Number: 008413

PATIENT
  Sex: Female
  Weight: 73 kg

DRUGS (16)
  1. CIMZIA [Suspect]
     Indication: CROHN'S DISEASE
     Dosage: (400 MG 1X/4 WEEKS SUBCUTANEOUS)
     Route: 058
     Dates: start: 20091109
  2. FOLIC ACID [Concomitant]
  3. PREDNISONE [Concomitant]
  4. METHOTREXATE [Concomitant]
  5. LOPERAMIDE [Concomitant]
  6. IBUPROFEN [Concomitant]
  7. ACETAMINOPHEN [Concomitant]
  8. ALLEGRA [Concomitant]
  9. AMITRIPTYLINE HYDROCHLORIDE [Concomitant]
  10. CITALOPRAM HYDROBROMIDE [Concomitant]
  11. CYANOCOBALAMIN [Concomitant]
  12. FLUTICASONE PROPIONATE [Concomitant]
  13. HEPARIN LOCK FLUSH [Concomitant]
  14. LEVOFLOXACIN [Concomitant]
  15. METROGEL [Concomitant]
  16. CLONAZEPAM [Concomitant]

REACTIONS (3)
  - ANXIETY [None]
  - CELLULITIS [None]
  - MULTIPLE ALLERGIES [None]
